FAERS Safety Report 8781353 (Version 1)
Quarter: 2012Q4

REPORT INFORMATION
  Report Type: Report from Study
  Country: US (occurrence: US)
  Receive Date: 20120913
  Receipt Date: 20120913
  Transmission Date: 20130627
  Serious: Yes (Hospitalization)
  Sender: FDA-Public Use
  Company Number: US-BAYER-2012-095322

PATIENT
  Age: 74 Year
  Sex: Male

DRUGS (2)
  1. ASA, ASPIRIN [Suspect]
     Indication: ACUTE CORONARY SYNDROME
     Dosage: 325 mg, UNK
  2. ASA, ASPIRIN [Suspect]
     Indication: ANTIPLATELET THERAPY

REACTIONS (1)
  - Gastrointestinal haemorrhage [None]
